FAERS Safety Report 11116848 (Version 2)
Quarter: 2015Q2

REPORT INFORMATION
  Report Type: Spontaneous
  Country: US (occurrence: US)
  Receive Date: 20150515
  Receipt Date: 20150612
  Transmission Date: 20150821
  Serious: Yes (Hospitalization)
  Sender: FDA-Public Use
  Company Number: US-ACTELION-A-US2015-117864

PATIENT
  Age: 39 Year
  Sex: Female

DRUGS (3)
  1. VELETRI [Suspect]
     Active Substance: EPOPROSTENOL
     Indication: PULMONARY ARTERIAL HYPERTENSION
     Dosage: 17.25 NG/KG, PER MIN
     Route: 042
     Dates: start: 20150106
  2. RIOCIGUAT [Concomitant]
     Active Substance: RIOCIGUAT
  3. LETAIRIS [Concomitant]
     Active Substance: AMBRISENTAN

REACTIONS (6)
  - Dyspnoea [Unknown]
  - Scleroderma [Unknown]
  - Pulmonary oedema [Unknown]
  - Fluid retention [Unknown]
  - Oedema peripheral [Unknown]
  - Cardiac failure [Unknown]
